FAERS Safety Report 6039520-5 (Version None)
Quarter: 2009Q1

REPORT INFORMATION
  Report Type: 
  Country: None (occurrence: None)
  Receive Date: 20090107
  Receipt Date: 20081224
  Transmission Date: 20090719
  Serious: Yes (Hospitalization)
  Sender: FDA-Public Use
  Company Number: 200814192

PATIENT
  Age: 14 Year
  Sex: Male
  Weight: 53 kg

DRUGS (4)
  1. PRIVIGEN [Suspect]
     Indication: BLOOD IMMUNOGLOBULIN G DECREASED
     Dosage: 30 G Q1MO IV
     Route: 042
     Dates: start: 20080701
  2. PRIVIGEN [Suspect]
     Indication: INFECTION
     Dosage: 30 G Q1MO IV
     Route: 042
     Dates: start: 20080701
  3. PRIVIGEN [Suspect]
     Indication: BLOOD IMMUNOGLOBULIN G DECREASED
     Dosage: 30 G Q1MO IV
     Route: 042
     Dates: start: 20080812
  4. PRIVIGEN [Suspect]
     Indication: INFECTION
     Dosage: 30 G Q1MO IV
     Route: 042
     Dates: start: 20080812

REACTIONS (8)
  - CHEST PAIN [None]
  - CHILLS [None]
  - GASTROINTESTINAL ULCER [None]
  - GASTROOESOPHAGEAL REFLUX DISEASE [None]
  - HEADACHE [None]
  - INFUSION RELATED REACTION [None]
  - SINUSITIS [None]
  - TACHYCARDIA [None]
